FAERS Safety Report 23353342 (Version 2)
Quarter: 2025Q1

REPORT INFORMATION
  Report Type: Spontaneous
  Country: US (occurrence: US)
  Receive Date: 20231231
  Receipt Date: 20250319
  Transmission Date: 20250409
  Serious: Yes (Death, Life-Threatening, Hospitalization, Other)
  Sender: AUROBINDO
  Company Number: US-MLMSERVICE-20231213-4718835-1

PATIENT
  Age: 53 Year
  Sex: Male

DRUGS (6)
  1. METHYLPREDNISOLONE [Suspect]
     Active Substance: METHYLPREDNISOLONE
     Indication: Transplant rejection
     Route: 042
  2. METHYLPREDNISOLONE [Suspect]
     Active Substance: METHYLPREDNISOLONE
     Indication: Immunosuppressant drug therapy
     Route: 065
     Dates: start: 2022, end: 2022
  3. VALGANCICLOVIR [Suspect]
     Active Substance: VALGANCICLOVIR
     Indication: Antiviral prophylaxis
     Route: 065
     Dates: start: 2022
  4. MYCOPHENOLATE MOFETIL [Suspect]
     Active Substance: MYCOPHENOLATE MOFETIL
     Indication: Immunosuppressant drug therapy
     Dosage: 1000 MILLIGRAM, TWO TIMES A DAY (1000 MG TWICE DAILY)
     Route: 065
     Dates: start: 2022
  5. TACROLIMUS [Suspect]
     Active Substance: TACROLIMUS
     Indication: Immunosuppressant drug therapy
     Dosage: 11 MILLIGRAM, TWO TIMES A DAY (11 MG TWICE DAILY)
     Route: 065
     Dates: start: 2022
  6. COTRIMOXAZOLE [Concomitant]
     Active Substance: SULFAMETHOXAZOLE\TRIMETHOPRIM
     Indication: Prophylaxis
     Route: 065
     Dates: start: 2022

REACTIONS (21)
  - Cardiac arrest [Fatal]
  - Cardiac infection [Fatal]
  - Central nervous system viral infection [Fatal]
  - Haematological infection [Fatal]
  - Haematemesis [Fatal]
  - Monkeypox [Fatal]
  - Pneumonia [Fatal]
  - Splenic infection viral [Fatal]
  - Respiratory failure [Fatal]
  - Encephalopathy [Fatal]
  - Lactic acidosis [Fatal]
  - Acute hepatic failure [Fatal]
  - Coagulopathy [Fatal]
  - Kidney infection [Fatal]
  - Oesophageal infection [Fatal]
  - Multiple organ dysfunction syndrome [Fatal]
  - Orchitis [Fatal]
  - Hepatic infection [Fatal]
  - Lymph gland infection [Fatal]
  - Shock [Fatal]
  - Drug ineffective [Unknown]
